FAERS Safety Report 5678476-1 (Version None)
Quarter: 2008Q1

REPORT INFORMATION
  Report Type: 
  Country: None (occurrence: None)
  Receive Date: 20080325
  Receipt Date: 20080317
  Transmission Date: 20080703
  Serious: Yes (Other)
  Sender: FDA-Public Use
  Company Number: US-JNJFOC-20080304118

PATIENT
  Sex: Female
  Weight: 68.04 kg

DRUGS (6)
  1. REMICADE [Suspect]
     Indication: RHEUMATOID ARTHRITIS
     Route: 042
  2. MULTI-VITAMIN [Concomitant]
  3. FOLIC ACID [Concomitant]
     Indication: RHEUMATOID ARTHRITIS
  4. NEXIUM [Concomitant]
     Indication: GASTROOESOPHAGEAL REFLUX DISEASE
  5. DARVOCET [Concomitant]
     Indication: ARTHRALGIA
  6. XANAX [Concomitant]
     Indication: ANXIETY

REACTIONS (1)
  - PANCREATIC CARCINOMA [None]
